FAERS Safety Report 8759128 (Version 1)
Quarter: 2012Q4

REPORT INFORMATION
  Report Type: 
  Country: HN (occurrence: HN)
  Receive Date: 20120829
  Receipt Date: 20120829
  Transmission Date: 20130627
  Serious: Yes (Death, Hospitalization, Other)
  Sender: FDA-Public Use
  Company Number: PHHY2009HN070784

PATIENT
  Sex: Male

DRUGS (1)
  1. GLIVEC [Suspect]
     Dosage: UNK UKN, UNK
     Dates: start: 20060626

REACTIONS (4)
  - Death [Fatal]
  - Rectal haemorrhage [Unknown]
  - Neoplasm progression [Unknown]
  - Malignant neoplasm progression [Unknown]
